FAERS Safety Report 8247208-5 (Version None)
Quarter: 2012Q1

REPORT INFORMATION
  Report Type: 
  Country: None (occurrence: None)
  Receive Date: 20120330
  Receipt Date: 20120322
  Transmission Date: 20120608
  Serious: Yes (Other)
  Sender: FDA-Public Use
  Company Number: US-BAYER-2012-029111

PATIENT
  Age: 38 Year
  Sex: Female

DRUGS (13)
  1. SYNTHROID [Concomitant]
     Dosage: 25 MCG/24HR, QD
  2. TRILYTE [Concomitant]
     Dosage: AS DIRECTED
     Dates: start: 20080204
  3. METOCLOPRAMIDE [Concomitant]
     Dosage: 10 MG, AS DIRECTED
     Dates: start: 20080204
  4. YAZ [Suspect]
     Dosage: UNK
     Dates: start: 20080301
  5. BISACODYL [Concomitant]
     Dosage: 5 MG, AS DIRECTED
     Dates: start: 20080204
  6. TAMIFLU [Concomitant]
     Dosage: 75 MG, QD
     Dates: start: 20080211
  7. METRONIDAZOLE [Concomitant]
     Dosage: 500 MG, BID FOR 5 DAYS
     Dates: start: 20080212
  8. MULTI-VITAMIN [Concomitant]
  9. AZITHROMYCIN [Concomitant]
     Dosage: 250 MG,2 TABLETS TODAY THEN ONE DAILY UNTIL ALL TAKEN. 5 TABLETS DISPENSED
     Dates: start: 20080204
  10. TYLENOL [Concomitant]
     Dosage: PRN
  11. DARVOCET [Concomitant]
     Dosage: UNK
  12. CELEBREX [Concomitant]
     Indication: PAIN
     Dosage: UNK
  13. CALCIUM CARBONATE [Concomitant]

REACTIONS (2)
  - PAIN IN EXTREMITY [None]
  - DEEP VEIN THROMBOSIS [None]
